FAERS Safety Report 8521214-5 (Version None)
Quarter: 2012Q3

REPORT INFORMATION
  Report Type: 
  Country: None (occurrence: None)
  Receive Date: 20120712
  Receipt Date: 20120712
  Transmission Date: 20120928
  Serious: Yes (Other)
  Sender: FDA-Public Use
  Company Number: None

PATIENT
  Age: 17 Year
  Sex: Female
  Weight: 120.4 kg

DRUGS (5)
  1. LANSOPRAZOLE [Concomitant]
  2. AZATHIOPRINE [Suspect]
     Indication: ANTI-NEUTROPHIL CYTOPLASMIC ANTIBODY POSITIVE VASCULITIS
     Dosage: 200MG ONCE A  DAY PO
     Route: 048
     Dates: start: 20110608, end: 20110713
  3. DEPO-PROVERA [Concomitant]
  4. LOSARTAN POTASSIUM [Concomitant]
  5. LISINOPRIL [Concomitant]

REACTIONS (4)
  - DECREASED APPETITE [None]
  - NAUSEA [None]
  - WEIGHT DECREASED [None]
  - PRODUCT QUALITY ISSUE [None]
